FAERS Safety Report 5109961-9 (Version None)
Quarter: 2006Q3

REPORT INFORMATION
  Report Type: 
  Country: None (occurrence: None)
  Receive Date: 20060919
  Receipt Date: 20060919
  Transmission Date: 20061208
  Serious: Yes (Other)
  Sender: FDA-Public Use
  Company Number: None

PATIENT
  Sex: Female
  Weight: 89.3586 kg

DRUGS (1)
  1. GLUCOPHAGE [Suspect]
     Indication: DIABETES MELLITUS
     Dosage: 500 MG 1 BID ORAL
     Route: 048
     Dates: start: 20060301

REACTIONS (4)
  - DIARRHOEA [None]
  - NAUSEA [None]
  - RASH GENERALISED [None]
  - VOMITING [None]
